FAERS Safety Report 22638653 (Version 1)
Quarter: 2023Q2

REPORT INFORMATION
  Report Type: Spontaneous
  Country: US (occurrence: None)
  Receive Date: 20230626
  Receipt Date: 20230626
  Transmission Date: 20230722
  Serious: Yes (Other)
  Sender: FDA-Public Use
  Company Number: US-ROCHE-3375006

PATIENT
  Age: 36 Year
  Sex: Female

DRUGS (1)
  1. OCREVUS [Suspect]
     Active Substance: OCRELIZUMAB
     Indication: Relapsing-remitting multiple sclerosis
     Dosage: 1ST DOSE WAS 300MG, THEN 2 WEEKS LATER 300MG, AND THEN EVERY 6MONTHS 600MG
     Route: 042
     Dates: start: 20230501

REACTIONS (2)
  - Multiple sclerosis pseudo relapse [Recovering/Resolving]
  - Splinter [Recovered/Resolved]

NARRATIVE: CASE EVENT DATE: 20230501
